FAERS Safety Report 5167589-9 (Version None)
Quarter: 2006Q4

REPORT INFORMATION
  Report Type: 
  Country: None (occurrence: None)
  Receive Date: 20060918
  Receipt Date: 20060614
  Transmission Date: 20070319
  Serious: Yes (Other)
  Sender: FDA-Public Use
  Company Number: NSADSS2002023503

PATIENT
  Age: 60 Year
  Sex: Female

DRUGS (16)
  1. TOPAMAX [Suspect]
     Indication: NEUROPATHY PERIPHERAL
     Dosage: SEE IMAGE
     Route: 048
     Dates: start: 20011201, end: 20011219
  2. TOPAMAX [Suspect]
     Indication: PAIN
     Dosage: SEE IMAGE
     Route: 048
     Dates: start: 20011201, end: 20011219
  3. TOPAMAX [Suspect]
     Indication: NEUROPATHY PERIPHERAL
     Dosage: SEE IMAGE
     Route: 048
     Dates: start: 20010727
  4. TOPAMAX [Suspect]
     Indication: PAIN
     Dosage: SEE IMAGE
     Route: 048
     Dates: start: 20010727
  5. ALPHAGEN (BRIMONIDINE TARTRATE) [Concomitant]
  6. COSOPT (COSOPT) [Concomitant]
  7. PREMARIN [Concomitant]
  8. ELAVIL [Concomitant]
  9. CLARITIN [Concomitant]
  10. HYDROCHLOROTHIAZIDE [Concomitant]
  11. ZOCOR [Concomitant]
  12. METOPROLOL TARTRATE [Concomitant]
  13. ASPIRIN [Concomitant]
  14. LIPITOR [Concomitant]
  15. ADVIL [Concomitant]
  16. LUMIGAN [Concomitant]

REACTIONS (6)
  - AMAUROSIS FUGAX [None]
  - ANGLE CLOSURE GLAUCOMA [None]
  - CATARACT [None]
  - HYPOTONIA [None]
  - MACULOPATHY [None]
  - TEMPORAL ARTERITIS [None]
